FAERS Safety Report 8255914-1 (Version None)
Quarter: 2012Q1

REPORT INFORMATION
  Report Type: 
  Country: None (occurrence: None)
  Receive Date: 20120322
  Receipt Date: 20120123
  Transmission Date: 20120608
  Serious: Yes (Hospitalization)
  Sender: FDA-Public Use
  Company Number: UTC-013221

PATIENT
  Age: 9 Year
  Sex: Female
  Weight: 23.6 kg

DRUGS (3)
  1. TRACLEER [Concomitant]
  2. REVATIO [Concomitant]
  3. TYVASO [Suspect]
     Indication: HYPERTENSION
     Dosage: 72 MCG (18 MCG, 4 IN 1 D), INHALATION
     Route: 055
     Dates: start: 20100521

REACTIONS (1)
  - TRANSIENT ISCHAEMIC ATTACK [None]
